FAERS Safety Report 11358657 (Version 1)
Quarter: 2015Q3

REPORT INFORMATION
  Report Type: Spontaneous
  Country: US (occurrence: US)
  Receive Date: 20150803
  Receipt Date: 20150803
  Transmission Date: 20151125
  Serious: No
  Sender: FDA-Public Use
  Company Number: US-ELI_LILLY_AND_COMPANY-US200902001418

PATIENT
  Sex: Male
  Weight: 92.97 kg

DRUGS (13)
  1. NEXIUM [Concomitant]
     Active Substance: ESOMEPRAZOLE MAGNESIUM
     Indication: GASTROOESOPHAGEAL REFLUX DISEASE
  2. METFORMIN [Concomitant]
     Active Substance: METFORMIN HYDROCHLORIDE
     Indication: DIABETES MELLITUS
  3. ANAFLEX [Concomitant]
  4. LOPID [Concomitant]
     Active Substance: GEMFIBROZIL
     Indication: BLOOD TRIGLYCERIDES
  5. LYRICA [Concomitant]
     Active Substance: PREGABALIN
     Indication: PAIN
  6. OXYCODONE [Concomitant]
     Active Substance: OXYCODONE
     Indication: PAIN
  7. ATIVAN [Concomitant]
     Active Substance: LORAZEPAM
     Dosage: 3 MG, UNK
  8. ASPIRIN. [Concomitant]
     Active Substance: ASPIRIN
     Dosage: 80 MG, UNK
  9. WELLBUTRIN [Concomitant]
     Active Substance: BUPROPION HYDROCHLORIDE
  10. IBUPROFEN. [Concomitant]
     Active Substance: IBUPROFEN
     Dosage: 800 MG, UNK
  11. NORVASC [Concomitant]
     Active Substance: AMLODIPINE BESYLATE
     Indication: BLOOD PRESSURE MEASUREMENT
  12. ZYPREXA [Suspect]
     Active Substance: OLANZAPINE
     Dosage: 22.5 MG, DAILY (1/D)
     Dates: start: 1997
  13. STOOL SOFTENER [Concomitant]
     Active Substance: DOCUSATE CALCIUM

REACTIONS (3)
  - Diabetic neuropathy [Unknown]
  - Pain [Not Recovered/Not Resolved]
  - Constipation [Unknown]
